FAERS Safety Report 8078199-8 (Version None)
Quarter: 2012Q1

REPORT INFORMATION
  Report Type: 
  Country: None (occurrence: None)
  Receive Date: 20120127
  Receipt Date: 20110110
  Transmission Date: 20120608
  Serious: No
  Sender: FDA-Public Use
  Company Number: US-ABBOTT-10P-163-0692726-00

PATIENT
  Age: 55 Year
  Sex: Male

DRUGS (5)
  1. THYROID MEDICATION [Concomitant]
     Indication: PRODUCT USED FOR UNKNOWN INDICATION
  2. HUMIRA [Suspect]
     Dosage: 80 MG ONCE - SECOND DOSE
     Dates: start: 20101216, end: 20101216
  3. HUMIRA [Suspect]
     Indication: CROHN'S DISEASE
     Dates: start: 20101202, end: 20101202
  4. LIALDA [Concomitant]
     Indication: CROHN'S DISEASE
  5. BLOOD PRESSURE MEDICATION [Concomitant]
     Indication: BLOOD PRESSURE

REACTIONS (5)
  - RASH ERYTHEMATOUS [None]
  - AMNESIA [None]
  - PERIORBITAL HAEMATOMA [None]
  - EYE SWELLING [None]
  - HEADACHE [None]
